FAERS Safety Report 14979170 (Version 2)
Quarter: 2018Q3

REPORT INFORMATION
  Report Type: Spontaneous
  Country: JP (occurrence: JP)
  Receive Date: 20180606
  Receipt Date: 20180911
  Transmission Date: 20181010
  Serious: Yes (Other)
  Sender: FDA-Public Use
  Company Number: JP-PFIZER INC-2018225332

PATIENT
  Age: 72 Year
  Sex: Female

DRUGS (2)
  1. ZYRTEC [Concomitant]
     Active Substance: CETIRIZINE HYDROCHLORIDE
     Dosage: UNK
  2. LYRICA [Suspect]
     Active Substance: PREGABALIN
     Indication: HYPOAESTHESIA
     Dosage: 150 MG, TWICE DAILY
     Route: 048
     Dates: start: 20180508, end: 20180615

REACTIONS (1)
  - Deafness unilateral [Recovered/Resolved]

NARRATIVE: CASE EVENT DATE: 20180525
